FAERS Safety Report 7064810-7 (Version None)
Quarter: 2010Q4

REPORT INFORMATION
  Report Type: 
  Country: None (occurrence: None)
  Receive Date: 20101027
  Receipt Date: 19861113
  Transmission Date: 20110411
  Serious: Yes (Death, Life-Threatening, Hospitalization)
  Sender: FDA-Public Use
  Company Number: US-ROCHE-860201370001

PATIENT
  Age: 56 Year
  Sex: Male
  Weight: 81.6 kg

DRUGS (1)
  1. VERSED [Suspect]
     Indication: LIGHT ANAESTHESIA
     Route: 042
     Dates: start: 19861021, end: 19861021

REACTIONS (2)
  - AMNESIA [None]
  - AORTIC DISSECTION [None]
